FAERS Safety Report 7940799-0 (Version None)
Quarter: 2011Q4

REPORT INFORMATION
  Report Type: 
  Country: None (occurrence: None)
  Receive Date: 20111108
  Receipt Date: 20100929
  Transmission Date: 20120403
  Serious: Yes (Death)
  Sender: FDA-Public Use
  Company Number: PHHY2010US33652

PATIENT
  Age: 48 Year
  Sex: Male
  Weight: 87.7257 kg

DRUGS (4)
  1. ZOMETA [Suspect]
     Indication: PROSTATE CANCER
     Dosage: 4 MG MONTHLY, INTRAVENOUS, UNK
     Route: 042
     Dates: start: 20091009
  2. ZOMETA [Suspect]
     Indication: PROSTATE CANCER
     Dosage: 4 MG MONTHLY, INTRAVENOUS, UNK
     Route: 042
     Dates: start: 20091211
  3. ZOMETA [Suspect]
     Indication: PROSTATE CANCER
     Dosage: 4 MG MONTHLY, INTRAVENOUS, UNK
     Route: 042
     Dates: start: 20100108, end: 20100212
  4. ZOMETA [Suspect]
     Indication: PROSTATE CANCER
     Dosage: 4 MG MONTHLY, INTRAVENOUS, UNK
     Route: 042
     Dates: start: 20091113

REACTIONS (1)
  - PROSTATE CANCER METASTATIC [None]
